FAERS Safety Report 10716544 (Version 2)
Quarter: 2015Q1

REPORT INFORMATION
  Report Type: Spontaneous
  Country: US (occurrence: US)
  Receive Date: 20150116
  Receipt Date: 20150302
  Transmission Date: 20150721
  Serious: Yes (Hospitalization)
  Sender: FDA-Public Use
  Company Number: US-BAYER-2015-004295

PATIENT
  Age: 39 Year
  Sex: Female
  Weight: 60.32 kg

DRUGS (1)
  1. MIRENA [Suspect]
     Active Substance: LEVONORGESTREL
     Indication: CONTRACEPTION
     Dosage: 20 MCG/24HR, CONT
     Route: 015
     Dates: start: 20090114, end: 20140228

REACTIONS (8)
  - Depression [None]
  - Emotional distress [None]
  - Device dislocation [None]
  - Injury [None]
  - Device issue [None]
  - Uterine perforation [None]
  - Anxiety [None]
  - Pain [None]

NARRATIVE: CASE EVENT DATE: 201308
